FAERS Safety Report 8612891-9 (Version None)
Quarter: 2012Q3

REPORT INFORMATION
  Report Type: 
  Country: None (occurrence: None)
  Receive Date: 20120822
  Receipt Date: 20110825
  Transmission Date: 20120928
  Serious: No
  Sender: FDA-Public Use
  Company Number: US-ALLERGAN-1111397US

PATIENT
  Sex: Female

DRUGS (8)
  1. METOPROLOL TARTRATE [Concomitant]
  2. SIMVASTATIN [Concomitant]
  3. FLUOXETINE HCL [Concomitant]
  4. LEVOTHYROXINE SODIUM [Concomitant]
  5. VITAMIN D [Concomitant]
  6. SANCTURA XR [Suspect]
     Indication: URINARY INCONTINENCE
     Dosage: 60 MG, QAM
     Route: 048
     Dates: start: 20110817, end: 20110823
  7. WARFARIN SODIUM [Concomitant]
  8. VITAMIN B-12 [Concomitant]

REACTIONS (2)
  - MUSCLE SPASMS [None]
  - BACK PAIN [None]
